FAERS Safety Report 6864769-9 (Version None)
Quarter: 2010Q3

REPORT INFORMATION
  Report Type: 
  Country: None (occurrence: None)
  Receive Date: 20100720
  Receipt Date: 20100707
  Transmission Date: 20110219
  Serious: Yes (Hospitalization)
  Sender: FDA-Public Use
  Company Number: 7006077

PATIENT
  Age: 51 Year
  Sex: Female

DRUGS (4)
  1. REBIF [Suspect]
     Indication: PRODUCT USED FOR UNKNOWN INDICATION
     Dosage: 44 MCG, 3 IN 1 WK, SUBCUTANEOUS
     Route: 058
     Dates: start: 20100223
  2. WELLBUTRIN [Concomitant]
  3. ALEVE [Concomitant]
  4. ANXIETY PILLS [Concomitant]

REACTIONS (6)
  - ALCOHOL USE [None]
  - CONDITION AGGRAVATED [None]
  - DEPRESSION [None]
  - DRUG ABUSE [None]
  - MUSCLE SPASMS [None]
  - SUICIDAL IDEATION [None]
